FAERS Safety Report 14184564 (Version 1)
Quarter: 2017Q4

REPORT INFORMATION
  Report Type: Spontaneous
  Country: NL (occurrence: NL)
  Receive Date: 20171113
  Receipt Date: 20171113
  Transmission Date: 20180321
  Serious: Yes (Other)
  Sender: FDA-Public Use
  Company Number: NL-MYLANLABS-2017M1071980

PATIENT
  Age: 13 Year
  Sex: Female

DRUGS (2)
  1. IMATINIB [Suspect]
     Active Substance: IMATINIB
     Indication: BONE GIANT CELL TUMOUR BENIGN
     Dosage: 400 MG, UNK
     Route: 048
  2. CALCITONIN SALMON MYLAN [Suspect]
     Active Substance: CALCITONIN SALMON
     Indication: BONE GIANT CELL TUMOUR BENIGN
     Dosage: 150 IU, QD
     Route: 058

REACTIONS (4)
  - Drug administered to patient of inappropriate age [Unknown]
  - Product use in unapproved indication [Unknown]
  - Disease progression [Recovering/Resolving]
  - Bone giant cell tumour benign [Recovering/Resolving]
